FAERS Safety Report 22921477 (Version 2)
Quarter: 2024Q3

REPORT INFORMATION
  Report Type: Spontaneous
  Country: US (occurrence: None)
  Receive Date: 20230908
  Receipt Date: 20240906
  Transmission Date: 20241017
  Serious: No
  Sender: DOMPE FARMACEUTICI
  Company Number: US-FARMAPROD-202306-1880

PATIENT
  Age: 70 Year
  Sex: Male
  Weight: 90.26 kg

DRUGS (15)
  1. OXERVATE [Suspect]
     Active Substance: CENEGERMIN-BKBJ
     Indication: Neurotrophic keratopathy
     Route: 047
     Dates: start: 20230614
  2. OXERVATE [Suspect]
     Active Substance: CENEGERMIN-BKBJ
  3. RHOPRESSA [Concomitant]
     Active Substance: NETARSUDIL MESYLATE
  4. MOXIFLOXACIN [Concomitant]
     Active Substance: MOXIFLOXACIN
  5. LATANOPROST [Concomitant]
     Active Substance: LATANOPROST
  6. SENOKOT [Concomitant]
     Active Substance: SENNOSIDES
  7. LISINOPRIL [Concomitant]
     Active Substance: LISINOPRIL
  8. ATORVASTATIN CALCIUM [Concomitant]
     Active Substance: ATORVASTATIN CALCIUM
  9. LEVOTHYROXINE SODIUM [Concomitant]
     Active Substance: LEVOTHYROXINE SODIUM
  10. METOPROLOL SUCCINATE [Concomitant]
     Active Substance: METOPROLOL SUCCINATE
     Dosage: FOR 24 HOURS
  11. METFORMIN HYDROCHLORIDE [Concomitant]
     Active Substance: METFORMIN HYDROCHLORIDE
  12. JANUVIA [Concomitant]
     Active Substance: SITAGLIPTIN PHOSPHATE
  13. ASPIRIN [Concomitant]
     Active Substance: ASPIRIN
  14. GABAPENTIN [Concomitant]
     Active Substance: GABAPENTIN
  15. BACLOFEN [Concomitant]
     Active Substance: BACLOFEN

REACTIONS (6)
  - Eye pain [Not Recovered/Not Resolved]
  - Dry eye [Unknown]
  - Photophobia [Unknown]
  - Foreign body sensation in eyes [Unknown]
  - Vision blurred [Unknown]
  - Lacrimation increased [Unknown]

NARRATIVE: CASE EVENT DATE: 20230601
